FAERS Safety Report 8237878 (Version 3)
Quarter: 2013Q2

REPORT INFORMATION
  Report Type: Spontaneous
  Country: US (occurrence: None)
  Receive Date: 20111102
  Receipt Date: 20130621
  Transmission Date: 20140414
  Serious: Yes (Death, Life-Threatening, Other)
  Sender: FDA-Public Use
  Company Number: US-2011-10778

PATIENT
  Age: 52 Year
  Sex: Male
  Weight: 83 kg

DRUGS (21)
  1. BUSULFAN [Suspect]
     Indication: NON-HODGKIN^S LYMPHOMA
     Dosage: 63.44 MG MILLIGRAM(S), DAILY DOSE, INTRAVENOUS; 208 MG MILLIGRAMS(S), DAILY DOSE, INTRAVENOUS
     Route: 042
     Dates: start: 20110915, end: 20110915
  2. ETOPOSIDE (ETOPOSIDE) [Concomitant]
  3. CYCLOPHOSPHAMIDE (CYCLOPHOSPHAMIDE) [Concomitant]
  4. PENTAMIDINE (PENTAMIDINE ISETHIONATE) [Concomitant]
  5. SCOPOLAMINE AMINOXIDE (SCOPOLAMINE AMINOXIDE) [Concomitant]
  6. ACETAMINOPHEN (PARACETAMOL) [Concomitant]
  7. ALTEPLASE (ALTEPLASE) [Concomitant]
  8. DIPHENHYDRAMINE HCL (DIPHENHYDRAMINE HYDROCHLORIDE) [Concomitant]
  9. HEPARIN FLUSH (HEPARIN SODIUM) [Concomitant]
  10. LORAZEPAM (LORAZEPAM) [Concomitant]
  11. ALUMINUM HYDROXIDE (ALUMINIUM HYDROXIDE) [Concomitant]
  12. MAGNESIUM HYDROXIDE (MAGNESIUM HYDROXIDE) [Concomitant]
  13. MINERAL OIL W/PETROLATUM (MINERAL OIL W/PETROLATUM) [Concomitant]
  14. ZOFRAN (ONDANSETRON HYDROCHLORIDE) [Concomitant]
  15. POLYVINYL ALCOHOL (POLYVINYL ALCOHOL) [Concomitant]
  16. SODIUM BICARBONATE (SODIUM BICARBONATE) [Concomitant]
  17. SODIUM CHLORIDE + DEXTROS (GLUCOSE) [Concomitant]
  18. VITAMIN A + D (ERGOCALCIFEROL, RETINOL) [Concomitant]
  19. ZINC OXIDE (ZINC OXIDE) [Concomitant]
  20. NYSTOP (NYSTATIN) [Concomitant]
  21. PROTONIX (PANTOPRAZOLE SODIUM) [Concomitant]

REACTIONS (35)
  - Pneumonia [None]
  - Dry mouth [None]
  - Nasal dryness [None]
  - Somnolence [None]
  - Sedation [None]
  - Pulmonary oedema [None]
  - Chest pain [None]
  - Pericardial effusion [None]
  - Tricuspid valve incompetence [None]
  - Mitral valve incompetence [None]
  - Cardiac failure [None]
  - Respiratory failure [None]
  - Lip disorder [None]
  - Nausea [None]
  - Pyrexia [None]
  - Mucosal inflammation [None]
  - Drug eruption [None]
  - Febrile neutropenia [None]
  - Renal failure acute [None]
  - Liver function test abnormal [None]
  - Post procedural complication [None]
  - Haemodialysis [None]
  - Cardiac failure congestive [None]
  - Multi-organ failure [None]
  - Pancytopenia [None]
  - Transaminases increased [None]
  - Blood bilirubin increased [None]
  - Hypoperfusion [None]
  - Cardiomyopathy [None]
  - Sepsis [None]
  - Myocardial infarction [None]
  - Renal failure [None]
  - Ischaemic hepatitis [None]
  - Ejection fraction decreased [None]
  - Multi-organ failure [None]
